FAERS Safety Report 9575785 (Version 2)
Quarter: 2013Q4

REPORT INFORMATION
  Report Type: Spontaneous
  Country: US (occurrence: US)
  Receive Date: 20131001
  Receipt Date: 20131001
  Transmission Date: 20140711
  Serious: No
  Sender: FDA-Public Use
  Company Number: US-AMGEN-USASP2012053482

PATIENT
  Age: 94 Year
  Sex: Female
  Weight: 56.69 kg

DRUGS (10)
  1. PROCRIT [Suspect]
     Indication: MYELODYSPLASTIC SYNDROME
     Dosage: 7500 UNIT, 3 TIMES/WK
     Dates: start: 201204
  2. PROCRIT [Suspect]
     Dosage: 5000 UNIT, 3 TIMES/WK
     Dates: start: 2011, end: 201204
  3. MIRALAX [Concomitant]
     Dosage: UNK
  4. GLIPIZIDE [Concomitant]
     Indication: TYPE 2 DIABETES MELLITUS
     Dosage: UNK
  5. HYDROCODONE [Concomitant]
     Dosage: UNK UNK, PRN
  6. FLONASE [Concomitant]
     Dosage: UNK
  7. SYNTHROID [Concomitant]
     Dosage: UNK
  8. ZANTAC [Concomitant]
     Dosage: UNK
  9. ACLOSAN [Concomitant]
     Dosage: UNK
  10. CLARITIN [Concomitant]
     Dosage: UNK

REACTIONS (2)
  - Haemoglobin decreased [Not Recovered/Not Resolved]
  - Urinary tract infection [Not Recovered/Not Resolved]
